FAERS Safety Report 4433936-6 (Version None)
Quarter: 2004Q3

REPORT INFORMATION
  Report Type: 
  Country: None (occurrence: None)
  Receive Date: 20040825
  Receipt Date: 20040825
  Transmission Date: 20050211
  Serious: No
  Sender: FDA-Public Use
  Company Number: None

PATIENT
  Age: 83 Year
  Sex: Female
  Weight: 55.5656 kg

DRUGS (6)
  1. ACTOS [Suspect]
     Indication: DIABETES MELLITUS NON-INSULIN-DEPENDENT
     Dosage: 15 MG QD ORAL
     Route: 048
     Dates: start: 20040607, end: 20040816
  2. ASPIRIN [Concomitant]
  3. SYNTHROID [Concomitant]
  4. PROCARDIA XL [Concomitant]
  5. M.V.I. [Concomitant]
  6. CALCIUM [Concomitant]

REACTIONS (1)
  - NO ADVERSE EFFECT [None]
